FAERS Safety Report 22649152 (Version 1)
Quarter: 2023Q2

REPORT INFORMATION
  Report Type: Spontaneous
  Country: US (occurrence: US)
  Receive Date: 20230628
  Receipt Date: 20230628
  Transmission Date: 20230722
  Serious: Yes (Death)
  Sender: FDA-Public Use
  Company Number: US-002147023-NVSC2023US146635

PATIENT
  Age: 65 Year
  Sex: Female

DRUGS (1)
  1. RIBOCICLIB [Suspect]
     Active Substance: RIBOCICLIB
     Indication: Hormone receptor positive HER2 negative breast cancer
     Dosage: 200 MG, QD (21 DAYS ON, 7 DAYS OFF)
     Route: 048
     Dates: start: 20230501, end: 20230601

REACTIONS (2)
  - Thrombocytopenia [Fatal]
  - Incorrect dose administered [Unknown]

NARRATIVE: CASE EVENT DATE: 20230501
